FAERS Safety Report 9123290 (Version 1)
Quarter: 2013Q1

REPORT INFORMATION
  Report Type: Spontaneous
  Country: US (occurrence: None)
  Receive Date: 20130226
  Receipt Date: 20130226
  Transmission Date: 20140127
  Serious: No
  Sender: FDA-Public Use
  Company Number: None

PATIENT
  Sex: Female
  Weight: 40.9 kg

DRUGS (1)
  1. LAMICTAL 200MG [Suspect]
     Indication: GRAND MAL CONVULSION
     Route: 048
     Dates: start: 200410

REACTIONS (2)
  - Convulsion [None]
  - Therapeutic response unexpected with drug substitution [None]
